FAERS Safety Report 23404492 (Version 1)
Quarter: 2024Q1

REPORT INFORMATION
  Report Type: Spontaneous
  Country: CN (occurrence: CN)
  Receive Date: 20240116
  Receipt Date: 20240116
  Transmission Date: 20240410
  Serious: Yes (Life-Threatening, Hospitalization, Other)
  Sender: FDA-Public Use
  Company Number: None

PATIENT
  Age: 23 Year
  Sex: Male

DRUGS (3)
  1. CLONIDINE [Suspect]
     Active Substance: CLONIDINE
     Indication: Product used for unknown indication
     Dosage: 50 {DF} 1 TOTAL (50 TABLETS)
  2. OLMESARTAN MEDOXOMIL [Suspect]
     Active Substance: OLMESARTAN MEDOXOMIL
     Indication: Product used for unknown indication
     Dosage: 14 {DF} 1 TOTAL (14 TABLETS)
  3. NIFEDIPINE [Suspect]
     Active Substance: NIFEDIPINE
     Indication: Product used for unknown indication
     Dosage: 60 {DF} 1 TOTAL (60 TABLETS)

REACTIONS (5)
  - Gastrointestinal necrosis [Unknown]
  - Hypotension [Unknown]
  - Intentional overdose [Unknown]
  - Gastrointestinal ischaemia [Unknown]
  - Hypoperfusion [Unknown]
